FAERS Safety Report 4984409-3 (Version None)
Quarter: 2006Q2

REPORT INFORMATION
  Report Type: 
  Country: None (occurrence: None)
  Receive Date: 20060420
  Receipt Date: 20060411
  Transmission Date: 20061013
  Serious: Yes (Hospitalization)
  Sender: FDA-Public Use
  Company Number: 200610495BVD

PATIENT
  Age: 53 Year
  Sex: Male
  Weight: 80 kg

DRUGS (5)
  1. SORAFENIB [Suspect]
     Indication: RENAL CELL CARCINOMA STAGE UNSPECIFIED
     Dosage: 800 MG, TOTAL DAILY, ORAL
     Route: 048
     Dates: start: 20050323
  2. METOPROLOL SUCCINATE [Concomitant]
  3. AMLODIPINE [Concomitant]
  4. ALLOPURINOL [Concomitant]
  5. ACETYLSALICYLIC ACID SRT [Concomitant]

REACTIONS (2)
  - EPILEPSY [None]
  - METASTASES TO CENTRAL NERVOUS SYSTEM [None]
